FAERS Safety Report 6579325-X (Version None)
Quarter: 2010Q1

REPORT INFORMATION
  Report Type: 
  Country: None (occurrence: None)
  Receive Date: 20100212
  Receipt Date: 20100202
  Transmission Date: 20100710
  Serious: Yes (Other)
  Sender: FDA-Public Use
  Company Number: US-BAXTER-2010BH002449

PATIENT
  Age: 58 Year
  Sex: Female
  Weight: 45 kg

DRUGS (12)
  1. PLACEBO [Suspect]
     Indication: DEMENTIA ALZHEIMER'S TYPE
     Route: 042
     Dates: start: 20090526
  2. PLACEBO [Suspect]
     Route: 042
     Dates: start: 20100120, end: 20100120
  3. ARICEPT [Concomitant]
     Indication: DEMENTIA ALZHEIMER'S TYPE
     Route: 048
     Dates: start: 20070301
  4. NAMENDA [Concomitant]
     Indication: DEMENTIA ALZHEIMER'S TYPE
     Route: 048
     Dates: start: 20070801
  5. SERTRALINE HCL [Concomitant]
     Indication: DEPRESSION
     Route: 048
     Dates: start: 20080501, end: 20090506
  6. MULTI-VITAMIN [Concomitant]
     Indication: ROUTINE HEALTH MAINTENANCE
     Route: 048
     Dates: start: 20040101
  7. FISH OIL [Concomitant]
     Indication: ROUTINE HEALTH MAINTENANCE
     Route: 048
     Dates: start: 20000101, end: 20090315
  8. ADVIL [Concomitant]
     Indication: DISCOMFORT
     Route: 048
     Dates: start: 19990101
  9. CALCIUM [Concomitant]
     Indication: OSTEOPOROSIS PROPHYLAXIS
     Route: 048
     Dates: start: 20060101, end: 20081201
  10. METRONIDAZOLE [Concomitant]
     Indication: TOOTH ABSCESS
     Route: 048
     Dates: start: 20090615, end: 20090622
  11. AMOXICILLIN AND CLAVULANATE POTASSIUM [Concomitant]
     Indication: TOOTH ABSCESS
     Route: 048
     Dates: start: 20090615, end: 20090622
  12. PROZAC [Concomitant]
     Indication: DEPRESSION
     Route: 048
     Dates: start: 20090507

REACTIONS (1)
  - WEIGHT DECREASED [None]
